FAERS Safety Report 4577122-8 (Version None)
Quarter: 2005Q1

REPORT INFORMATION
  Report Type: 
  Country: None (occurrence: None)
  Receive Date: 20050208
  Receipt Date: 20050129
  Transmission Date: 20050727
  Serious: Yes (Hospitalization, Other)
  Sender: FDA-Public Use
  Company Number: 2004071171

PATIENT
  Sex: Female

DRUGS (3)
  1. NEURONTIN [Suspect]
     Indication: ILL-DEFINED DISORDER
     Dosage: 600 MG (600 MG, 1 IN 1 D)
     Dates: start: 20040101
  2. DILANTIN [Suspect]
     Indication: ILL-DEFINED DISORDER
  3. VENLAFAXINE HCL [Concomitant]

REACTIONS (3)
  - DRUG HYPERSENSITIVITY [None]
  - DRUG INTERACTION [None]
  - PYREXIA [None]
